FAERS Safety Report 9982067 (Version 1)
Quarter: 2014Q1

REPORT INFORMATION
  Report Type: Spontaneous
  Country: US (occurrence: None)
  Receive Date: 20140306
  Receipt Date: 20140306
  Transmission Date: 20141002
  Serious: Yes (Other)
  Sender: FDA-Public Use
  Company Number: None

PATIENT
  Age: 47 Year
  Sex: Female

DRUGS (2)
  1. RIBAVIRIN 200MG ZYDUS PHARMACEUTICALS [Suspect]
     Indication: CHRONIC HEPATITIS C
     Route: 048
     Dates: start: 20140205
  2. SOVALDI 400MG GILEAD SCIENCES [Suspect]
     Indication: CHRONIC HEPATITIS C
     Route: 048
     Dates: start: 20140206

REACTIONS (4)
  - Headache [None]
  - Nausea [None]
  - Visual impairment [None]
  - Refusal of treatment by patient [None]
